FAERS Safety Report 8312922-X (Version None)
Quarter: 2012Q2

REPORT INFORMATION
  Report Type: 
  Country: None (occurrence: None)
  Receive Date: 20120426
  Receipt Date: 20120417
  Transmission Date: 20120825
  Serious: Yes (Death)
  Sender: FDA-Public Use
  Company Number: FR-SANOFI-AVENTIS-2012SA026539

PATIENT
  Age: 71 Year
  Sex: Male

DRUGS (5)
  1. VALSARTAN/HYDROCHLOROTHIAZIDE [Concomitant]
  2. LANTUS [Suspect]
     Indication: TYPE 2 DIABETES MELLITUS
     Route: 058
     Dates: start: 20090501
  3. METFORMIN HCL [Concomitant]
  4. REPAGLINIDE [Concomitant]
  5. ISOPTIN [Concomitant]
     Dates: start: 20110501

REACTIONS (1)
  - GALLBLADDER CANCER [None]
